FAERS Safety Report 7379394 (Version 4)
Quarter: 2014Q1

REPORT INFORMATION
  Report Type: Spontaneous
  Country: GB (occurrence: GB)
  Receive Date: 20100506
  Receipt Date: 20140205
  Transmission Date: 20141002
  Serious: Yes (Death, Other)
  Sender: FDA-Public Use
  Company Number: GB-PFIZER INC-2010035359

PATIENT
  Age: 42 Year
  Sex: Male

DRUGS (4)
  1. FLUCONAZOLE [Suspect]
     Dosage: UNK
  2. PHENYTOIN [Suspect]
     Dosage: UNK
  3. CIPROFLOXACIN [Suspect]
     Dosage: UNK
  4. METRONIDAZOLE [Suspect]
     Dosage: UNK

REACTIONS (8)
  - Hepatitis acute [Fatal]
  - Brain herniation [Fatal]
  - Idiosyncratic drug reaction [Not Recovered/Not Resolved]
  - Metabolic acidosis [Not Recovered/Not Resolved]
  - Atrial fibrillation [Not Recovered/Not Resolved]
  - Coagulopathy [Not Recovered/Not Resolved]
  - Gastrointestinal haemorrhage [Not Recovered/Not Resolved]
  - Hypoglycaemia [Not Recovered/Not Resolved]
